FAERS Safety Report 19172831 (Version 1)
Quarter: 2021Q2

REPORT INFORMATION
  Report Type: Spontaneous
  Country: US (occurrence: US)
  Receive Date: 20210423
  Receipt Date: 20210423
  Transmission Date: 20210717
  Serious: Yes (Other)
  Sender: FDA-Public Use
  Company Number: US-BIO PRODUCTS LABORATORY LTD-2109674

PATIENT
  Sex: Female

DRUGS (6)
  1. DOPAMINE [Concomitant]
     Active Substance: DOPAMINE HYDROCHLORIDE
  2. HYDROCORTISONE. [Concomitant]
     Active Substance: HYDROCORTISONE
  3. CRYOPRECIPITATE [Concomitant]
     Active Substance: CRYOPRECIPITATED ANTIHEMOPHILIC FACTOR (HUMAN)
  4. HUMAN NORMAL IMMUNOGLOBULIN [Suspect]
     Active Substance: HUMAN IMMUNOGLOBULIN G
     Route: 042
  5. FRESH FROZEN PLASMA [Concomitant]
     Active Substance: HUMAN PLASMA
  6. SURFACTANT [Concomitant]

REACTIONS (3)
  - Off label use [Unknown]
  - Retinopathy of prematurity [Recovering/Resolving]
  - Drug effective for unapproved indication [Unknown]
